FAERS Safety Report 19514631 (Version 6)
Quarter: 2021Q3

REPORT INFORMATION
  Report Type: Report from Study
  Country: CO (occurrence: CO)
  Receive Date: 20210709
  Receipt Date: 20210903
  Transmission Date: 20211014
  Serious: Yes (Other)
  Sender: FDA-Public Use
  Company Number: CO-TAKEDA-CO202032444

PATIENT
  Age: 39 Year
  Sex: Male
  Weight: 54 kg

DRUGS (5)
  1. IDURSULFASE [Suspect]
     Active Substance: IDURSULFASE
     Indication: MUCOPOLYSACCHARIDOSIS II
     Dosage: 30 MILLIGRAM, 1/WEEK
     Route: 050
     Dates: start: 20170718
  2. IDURSULFASE [Suspect]
     Active Substance: IDURSULFASE
     Dosage: 6 MILLIGRAM
     Route: 042
  3. IDURSULFASE [Suspect]
     Active Substance: IDURSULFASE
     Dosage: UNK UNK, 1/WEEK
     Route: 050
     Dates: start: 2017
  4. IDURSULFASE [Suspect]
     Active Substance: IDURSULFASE
     Dosage: 30 MILLIGRAM, 1/WEEK
     Route: 065
     Dates: start: 20170718
  5. IDURSULFASE [Suspect]
     Active Substance: IDURSULFASE
     Dosage: 30 MILLIGRAM, 1/WEEK
     Route: 042
     Dates: start: 20170801

REACTIONS (17)
  - Rhinorrhoea [Recovering/Resolving]
  - Gait disturbance [Recovering/Resolving]
  - Therapy interrupted [Unknown]
  - Productive cough [Not Recovered/Not Resolved]
  - Pain [Recovering/Resolving]
  - Cough [Not Recovered/Not Resolved]
  - Pyrexia [Recovered/Resolved]
  - Infusion site inflammation [Recovering/Resolving]
  - Nasal congestion [Not Recovered/Not Resolved]
  - Inguinal hernia [Unknown]
  - Asthenia [Recovered/Resolved]
  - Malaise [Not Recovered/Not Resolved]
  - Bone pain [Unknown]
  - Umbilical hernia [Unknown]
  - Infusion site pain [Recovering/Resolving]
  - Influenza [Not Recovered/Not Resolved]
  - Off label use [Unknown]

NARRATIVE: CASE EVENT DATE: 20200920
